FAERS Safety Report 5084984-7 (Version None)
Quarter: 2006Q3

REPORT INFORMATION
  Report Type: 
  Country: None (occurrence: None)
  Receive Date: 20060815
  Receipt Date: 20060707
  Transmission Date: 20061208
  Serious: No
  Sender: FDA-Public Use
  Company Number: 20063078

PATIENT
  Sex: Female

DRUGS (3)
  1. LIORESAL [Suspect]
     Indication: MUSCLE SPASTICITY
     Dosage: MCG, DAILY, INTRATHECAL
     Route: 037
  2. CLONIDINE [Concomitant]
  3. MORPHINE [Concomitant]

REACTIONS (6)
  - DYSGEUSIA [None]
  - HEADACHE [None]
  - HYPOTONIA [None]
  - OVERDOSE [None]
  - PAIN [None]
  - YAWNING [None]
